FAERS Safety Report 7084898-7 (Version None)
Quarter: 2010Q4

REPORT INFORMATION
  Report Type: 
  Country: None (occurrence: None)
  Receive Date: 20101027
  Receipt Date: 20100902
  Transmission Date: 20110411
  Serious: Yes (Other)
  Sender: FDA-Public Use
  Company Number: JP-ACCORD-005746

PATIENT
  Age: 67 Year
  Sex: Female

DRUGS (2)
  1. CARBOPLATIN [Suspect]
     Indication: CHEMOTHERAPY
  2. PACLITAXEL [Suspect]
     Indication: CHEMOTHERAPY

REACTIONS (2)
  - ENDOMETRIAL CANCER [None]
  - SKIN LESION [None]
